FAERS Safety Report 5238344-6 (Version None)
Quarter: 2007Q1

REPORT INFORMATION
  Report Type: 
  Country: None (occurrence: None)
  Receive Date: 20070215
  Receipt Date: 20070202
  Transmission Date: 20070707
  Serious: Yes (Disabling, Other)
  Sender: FDA-Public Use
  Company Number: PHRM2007FR00699

PATIENT
  Age: 55 Year
  Sex: Female

DRUGS (2)
  1. GLEEVEC [Suspect]
     Indication: CHRONIC MYELOID LEUKAEMIA
     Dosage: 600 MG DAILY
     Route: 048
     Dates: start: 20000202, end: 20021101
  2. GLEEVEC [Suspect]
     Dosage: 300 MG PER DAY
     Route: 048
     Dates: start: 20021101

REACTIONS (4)
  - ARTHRALGIA [None]
  - HIP ARTHROPLASTY [None]
  - OSTEONECROSIS [None]
  - OSTEOPOROSIS [None]
